FAERS Safety Report 9097095 (Version 2)
Quarter: 2013Q1

REPORT INFORMATION
  Report Type: Spontaneous
  Country: CN (occurrence: None)
  Receive Date: 20130123
  Receipt Date: 20130204
  Transmission Date: 20140127
  Serious: Yes (Other)
  Sender: FDA-Public Use
  Company Number: CN-1196188

PATIENT
  Age: 22 Year
  Sex: Male

DRUGS (2)
  1. PREDNISOLONE [Suspect]
     Indication: POSTOPERATIVE CARE
     Route: 047
  2. CHLORAMPHENICOL [Suspect]
     Indication: POSTOPERATIVE CARE
     Dosage: 0.5 % QID OD
     Route: 047

REACTIONS (14)
  - Corneal epithelium defect [None]
  - Anterior chamber cell [None]
  - Anterior chamber flare [None]
  - Transplant rejection [None]
  - Corneal opacity [None]
  - Corneal oedema [None]
  - Visual acuity reduced [None]
  - Intraocular pressure increased [None]
  - Drug ineffective [None]
  - Eye pain [None]
  - Headache [None]
  - Simplex virus test positive [None]
  - Post procedural complication [None]
  - Herpes ophthalmic [None]
